FAERS Safety Report 15783243 (Version 1)
Quarter: 2019Q1

REPORT INFORMATION
  Report Type: Spontaneous
  Country: US (occurrence: US)
  Receive Date: 20190102
  Receipt Date: 20190102
  Transmission Date: 20190417
  Serious: No
  Sender: FDA-Public Use
  Company Number: US-AMNEAL PHARMACEUTICALS-2018AMN00907

PATIENT
  Sex: Female

DRUGS (1)
  1. VIGABATRIN. [Suspect]
     Active Substance: VIGABATRIN
     Indication: TUBEROUS SCLEROSIS COMPLEX
     Dosage: 1000 MG, 2X/DAY
     Route: 048

REACTIONS (1)
  - Adverse drug reaction [Unknown]
